FAERS Safety Report 13421451 (Version 2)
Quarter: 2017Q2

REPORT INFORMATION
  Report Type: Report from Study
  Country: US (occurrence: US)
  Receive Date: 20170410
  Receipt Date: 20170525
  Transmission Date: 20170830
  Serious: Yes (Hospitalization, Other)
  Sender: FDA-Public Use
  Company Number: US-AMGEN-USASL2017052382

PATIENT
  Age: 58 Year
  Sex: Female
  Weight: 68.27 kg

DRUGS (2)
  1. REPATHA [Suspect]
     Active Substance: EVOLOCUMAB
     Indication: HYPERCHOLESTEROLAEMIA
  2. REPATHA [Suspect]
     Active Substance: EVOLOCUMAB
     Indication: BLOOD CHOLESTEROL INCREASED
     Dosage: 140 MG, Q2WK
     Route: 058
     Dates: start: 20160620

REACTIONS (9)
  - Abasia [Unknown]
  - Muscular weakness [Unknown]
  - Muscle disorder [Unknown]
  - Abdominal discomfort [Recovered/Resolved]
  - Influenza like illness [Recovered/Resolved]
  - Chest discomfort [Unknown]
  - Myalgia [Recovered/Resolved]
  - Palpitations [Unknown]
  - Dyspnoea [Unknown]
